FAERS Safety Report 10462899 (Version 3)
Quarter: 2015Q1

REPORT INFORMATION
  Report Type: Report from Study
  Country: JP (occurrence: JP)
  Receive Date: 20140918
  Receipt Date: 20150226
  Transmission Date: 20150720
  Serious: Yes (Hospitalization)
  Sender: FDA-Public Use
  Company Number: JP-ASTRAZENECA-2014SE69780

PATIENT
  Age: 80 Year
  Sex: Male
  Weight: 60 kg

DRUGS (6)
  1. FOSAMAX [Concomitant]
     Active Substance: ALENDRONATE SODIUM
     Indication: OSTEOPOROSIS
     Route: 048
  2. CELECOX [Concomitant]
     Active Substance: CELECOXIB
     Indication: OSTEOARTHRITIS
     Route: 048
     Dates: start: 20120620
  3. TSUMURA SHAKUYAKUKANZOTO EXTRACT GRANULES FOR ETHICAL USE [Concomitant]
     Indication: MUSCLE SPASMS
     Route: 048
  4. LOXONIN [Concomitant]
     Active Substance: LOXOPROFEN SODIUM
     Indication: MYALGIA
     Dosage: TAPE, AS REQUIRED
     Route: 062
  5. NEXIUM [Suspect]
     Active Substance: ESOMEPRAZOLE MAGNESIUM
     Indication: PROPHYLAXIS AGAINST GASTROINTESTINAL ULCER
     Route: 048
     Dates: start: 20130730
  6. ALFAROL [Concomitant]
     Active Substance: ALFACALCIDOL
     Indication: OSTEOPOROSIS
     Route: 048

REACTIONS (2)
  - Pelvic fracture [Unknown]
  - Dizziness [Unknown]

NARRATIVE: CASE EVENT DATE: 20140726
